FAERS Safety Report 7420555-2 (Version None)
Quarter: 2011Q2

REPORT INFORMATION
  Report Type: 
  Country: None (occurrence: None)
  Receive Date: 20110418
  Receipt Date: 20110413
  Transmission Date: 20111010
  Serious: No
  Sender: FDA-Public Use
  Company Number: US-PFIZER INC-2011082118

PATIENT
  Sex: Female

DRUGS (2)
  1. NEURONTIN [Suspect]
     Dosage: UNK
  2. MEDROL [Suspect]
     Dosage: UNK
     Route: 048

REACTIONS (9)
  - ERYTHEMA [None]
  - FRUSTRATION [None]
  - CONFUSIONAL STATE [None]
  - HANGOVER [None]
  - DRY MOUTH [None]
  - PRODUCT LABEL ISSUE [None]
  - SOMNOLENCE [None]
  - OVERDOSE [None]
  - PRODUCT TASTE ABNORMAL [None]
